FAERS Safety Report 7980908-0 (Version None)
Quarter: 2011Q4

REPORT INFORMATION
  Report Type: 
  Country: None (occurrence: None)
  Receive Date: 20111215
  Receipt Date: 20111207
  Transmission Date: 20120403
  Serious: Yes (Death, Hospitalization)
  Sender: FDA-Public Use
  Company Number: US-BIOGENIDEC-2011BI011529

PATIENT
  Age: 55 Year
  Sex: Male
  Weight: 113 kg

DRUGS (3)
  1. NEURONTIN [Concomitant]
     Indication: MUSCLE SPASTICITY
     Route: 048
     Dates: start: 20100325, end: 20110316
  2. TYSABRI [Suspect]
     Indication: MULTIPLE SCLEROSIS
     Route: 042
     Dates: start: 20081002, end: 20110224
  3. BACLOFEN [Concomitant]
     Indication: MUSCLE SPASTICITY
     Route: 048
     Dates: end: 20110316

REACTIONS (17)
  - SINUS TACHYCARDIA [None]
  - VENTRICULAR TACHYCARDIA [None]
  - OEDEMA PERIPHERAL [None]
  - BLOOD GLUCOSE INCREASED [None]
  - LEFT ATRIAL HYPERTROPHY [None]
  - RESPIRATORY ACIDOSIS [None]
  - RESPIRATORY FAILURE [None]
  - MYOCARDIAL INFARCTION [None]
  - PROTHROMBIN TIME PROLONGED [None]
  - MENTAL STATUS CHANGES [None]
  - CARDIAC ARREST [None]
  - INTERNATIONAL NORMALISED RATIO INCREASED [None]
  - CYANOSIS [None]
  - BLOOD POTASSIUM DECREASED [None]
  - BLOOD SODIUM DECREASED [None]
  - BLOOD CALCIUM DECREASED [None]
  - PULSELESS ELECTRICAL ACTIVITY [None]
